FAERS Safety Report 7065188-5 (Version None)
Quarter: 2010Q4

REPORT INFORMATION
  Report Type: 
  Country: None (occurrence: None)
  Receive Date: 20101022
  Receipt Date: 20101022
  Transmission Date: 20110411
  Serious: Yes (Other)
  Sender: FDA-Public Use
  Company Number: None

PATIENT
  Weight: 68.0396 kg

DRUGS (3)
  1. BELLA DONNA ALKALOIDS W/PB TABLET WESTWARD 140 [Suspect]
     Indication: INFLAMMATORY BOWEL DISEASE
     Dosage: 1 PILL 2X A DAY ORAL
     Route: 048
     Dates: start: 20100910
  2. BELLA DONNA ALKALOIDS W/PB TABLET WESTWARD 140 [Suspect]
     Indication: INFLAMMATORY BOWEL DISEASE
     Dosage: 1 PILL 2X A DAY ORAL
     Route: 048
     Dates: start: 20100911
  3. BELLA DONNA ALKALOIDS W/PB TABLET WESTWARD 140 [Suspect]
     Indication: INFLAMMATORY BOWEL DISEASE
     Dosage: 1 PILL 2X A DAY ORAL
     Route: 048
     Dates: start: 20100912

REACTIONS (6)
  - ABNORMAL BEHAVIOUR [None]
  - AGGRESSION [None]
  - ANGER [None]
  - PANIC REACTION [None]
  - PSYCHOTIC DISORDER [None]
  - STRESS [None]
